FAERS Safety Report 21508722 (Version 1)
Quarter: 2022Q4

REPORT INFORMATION
  Report Type: Spontaneous
  Country: US (occurrence: US)
  Receive Date: 20221026
  Receipt Date: 20221026
  Transmission Date: 20230112
  Serious: Yes (Hospitalization, Other)
  Sender: FDA-Public Use
  Company Number: US-PFIZER INC-PV202200090151

PATIENT
  Age: 83 Year

DRUGS (1)
  1. VYNDAMAX [Suspect]
     Active Substance: TAFAMIDIS
     Dosage: UNK

REACTIONS (3)
  - Ejection fraction decreased [Unknown]
  - Cardiac ventricular thrombosis [Unknown]
  - Atrial fibrillation [Unknown]
